FAERS Safety Report 13830536 (Version 2)
Quarter: 2017Q4

REPORT INFORMATION
  Report Type: Spontaneous
  Country: US (occurrence: US)
  Receive Date: 20170803
  Receipt Date: 20171102
  Transmission Date: 20180320
  Serious: No
  Sender: FDA-Public Use
  Company Number: US-SA-2017SA117257

PATIENT
  Age: 69 Year
  Sex: Female

DRUGS (2)
  1. ALIROCUMAB PREFILLED PEN [Suspect]
     Active Substance: ALIROCUMAB
     Indication: BLOOD CHOLESTEROL
     Dates: start: 2016
  2. PRALUENT [Suspect]
     Active Substance: ALIROCUMAB
     Indication: BLOOD CHOLESTEROL
     Route: 058
     Dates: start: 2016

REACTIONS (5)
  - Skin atrophy [Not Recovered/Not Resolved]
  - Alopecia [Not Recovered/Not Resolved]
  - Depressed mood [Unknown]
  - Contusion [Not Recovered/Not Resolved]
  - Pruritus [Not Recovered/Not Resolved]
